FAERS Safety Report 21562662 (Version 4)
Quarter: 2023Q1

REPORT INFORMATION
  Report Type: Report from Study
  Country: CO (occurrence: CO)
  Receive Date: 20221107
  Receipt Date: 20230315
  Transmission Date: 20230417
  Serious: Yes (Hospitalization)
  Sender: FDA-Public Use
  Company Number: CO-BIOGEN-2022BI01167298

PATIENT
  Age: 55 Year
  Sex: Female
  Weight: 57 kg

DRUGS (6)
  1. TYSABRI [Suspect]
     Active Substance: NATALIZUMAB
     Indication: Multiple sclerosis
     Route: 050
     Dates: start: 20210921
  2. TYSABRI [Suspect]
     Active Substance: NATALIZUMAB
     Route: 050
  3. TAPENTADOL [Concomitant]
     Active Substance: TAPENTADOL
     Indication: Fibromyalgia
     Route: 050
     Dates: start: 2018
  4. QUETIAPINE [Concomitant]
     Active Substance: QUETIAPINE
     Indication: Anxiety
     Route: 050
     Dates: start: 2014
  5. DULOXETINE [Concomitant]
     Active Substance: DULOXETINE
     Indication: Anxiety
     Route: 050
     Dates: start: 2014
  6. PREGABALIN [Concomitant]
     Active Substance: PREGABALIN
     Indication: Product used for unknown indication
     Route: 050
     Dates: start: 2020

REACTIONS (3)
  - Nephrolithiasis [Recovered/Resolved]
  - Vaginal haemorrhage [Recovered/Resolved]
  - Urinary tract infection [Recovered/Resolved]

NARRATIVE: CASE EVENT DATE: 20220930
